FAERS Safety Report 18724885 (Version 8)
Quarter: 2022Q2

REPORT INFORMATION
  Report Type: Spontaneous
  Country: US (occurrence: US)
  Receive Date: 20210111
  Receipt Date: 20220513
  Transmission Date: 20220720
  Serious: No
  Sender: FDA-Public Use
  Company Number: US-SANOFI-00418413

PATIENT
  Age: 68 Year
  Sex: Female

DRUGS (2)
  1. LANTUS [Suspect]
     Active Substance: INSULIN GLARGINE
     Indication: Type 2 diabetes mellitus
     Dosage: UNK
     Route: 065
  2. LANTUS [Suspect]
     Active Substance: INSULIN GLARGINE
     Dosage: 20 IU, Q12H
     Route: 065

REACTIONS (9)
  - Blood glucose decreased [Unknown]
  - Device issue [Unknown]
  - Pollakiuria [Unknown]
  - Tremor [Unknown]
  - Hyperhidrosis [Unknown]
  - Vision blurred [Unknown]
  - Overdose [Unknown]
  - Visual impairment [Unknown]
  - Inappropriate schedule of product administration [Unknown]
